FAERS Safety Report 11239352 (Version 2)
Quarter: 2015Q3

REPORT INFORMATION
  Report Type: Report from Study
  Country: JP (occurrence: None)
  Receive Date: 20150701
  Receipt Date: 20150804
  Transmission Date: 20151125
  Serious: Yes (Hospitalization)
  Sender: FDA-Public Use
  Company Number: 2015FE02155

PATIENT
  Age: 69 Year
  Sex: Male
  Weight: 70 kg

DRUGS (2)
  1. CASODEX [Concomitant]
     Active Substance: BICALUTAMIDE
  2. GONAX [Suspect]
     Active Substance: DEGARELIX
     Indication: PROSTATE CANCER
     Dates: start: 20130412, end: 20130412

REACTIONS (3)
  - Condition aggravated [None]
  - Pulmonary fibrosis [None]
  - Hot flush [None]

NARRATIVE: CASE EVENT DATE: 20150203
